FAERS Safety Report 8258327-1 (Version None)
Quarter: 2012Q1

REPORT INFORMATION
  Report Type: 
  Country: None (occurrence: None)
  Receive Date: 20120322
  Receipt Date: 20120213
  Transmission Date: 20120608
  Serious: Yes (Hospitalization)
  Sender: FDA-Public Use
  Company Number: UTC-014925

PATIENT
  Age: 42 Year
  Sex: Female
  Weight: 95.5 kg

DRUGS (5)
  1. REMODULIN [Suspect]
     Indication: COR PULMONALE CHRONIC
     Dosage: 118.8 UG/KG (0.0825 UG/KG, 1 IN 1 MIN) INTRAVENOUS
     Route: 042
     Dates: start: 20100928
  2. REVATIO [Concomitant]
  3. LETAIRIS [Concomitant]
  4. TYVASO [Suspect]
     Indication: PRODUCT USED FOR UNKNOWN INDICATION
     Dosage: INHALATION
     Route: 055
  5. COUMADIN [Concomitant]

REACTIONS (2)
  - SUBDURAL HAEMATOMA [None]
  - PULMONARY ARTERIAL HYPERTENSION [None]
